FAERS Safety Report 5118056-X (Version None)
Quarter: 2006Q3

REPORT INFORMATION
  Report Type: 
  Country: None (occurrence: None)
  Receive Date: 20060929
  Receipt Date: 20060927
  Transmission Date: 20061208
  Serious: Yes (Life-Threatening, Hospitalization)
  Sender: FDA-Public Use
  Company Number: BG-MERCK-0609HUN00009

PATIENT
  Age: 10 Year
  Sex: Male
  Weight: 37 kg

DRUGS (2)
  1. SINGULAIR [Suspect]
     Indication: ASTHMA
     Route: 048
     Dates: start: 20060313, end: 20060325
  2. FLUTICASONE PROPIONATE [Concomitant]
     Indication: ASTHMA
     Route: 065
     Dates: start: 20050615

REACTIONS (1)
  - NEPHRITIS INTERSTITIAL [None]
